FAERS Safety Report 8620591-4 (Version None)
Quarter: 2012Q3

REPORT INFORMATION
  Report Type: 
  Country: None (occurrence: None)
  Receive Date: 20120824
  Receipt Date: 20120817
  Transmission Date: 20120928
  Serious: Yes (Life-Threatening, Hospitalization)
  Sender: FDA-Public Use
  Company Number: US-ACTELION-A-US2012-69116

PATIENT
  Age: 69 Year
  Sex: Female

DRUGS (2)
  1. COUMADIN [Concomitant]
  2. TRACLEER [Suspect]
     Indication: PULMONARY ARTERIAL HYPERTENSION
     Dosage: UNK
     Route: 048

REACTIONS (5)
  - DIZZINESS [None]
  - URTICARIA [None]
  - TRANSIENT ISCHAEMIC ATTACK [None]
  - NAUSEA [None]
  - MALAISE [None]
